FAERS Safety Report 24923635 (Version 3)
Quarter: 2025Q1

REPORT INFORMATION
  Report Type: Spontaneous
  Country: ES (occurrence: ES)
  Receive Date: 20250204
  Receipt Date: 20250212
  Transmission Date: 20250408
  Serious: Yes (Hospitalization)
  Sender: ROCHE
  Company Number: None

PATIENT
  Age: 64 Year
  Sex: Male

DRUGS (12)
  1. EMICIZUMAB [Suspect]
     Active Substance: EMICIZUMAB
     Indication: Factor VIII deficiency
     Route: 065
     Dates: start: 202101
  2. EMICIZUMAB [Suspect]
     Active Substance: EMICIZUMAB
     Route: 065
     Dates: start: 202109
  3. EMICIZUMAB [Suspect]
     Active Substance: EMICIZUMAB
     Route: 065
     Dates: start: 202201
  4. EMICIZUMAB [Suspect]
     Active Substance: EMICIZUMAB
     Route: 065
     Dates: start: 202109
  5. ELOCTATE [Suspect]
     Active Substance: EFMOROCTOCOG ALFA
     Indication: Factor VIII deficiency
     Dosage: TWICE A WEEK
     Route: 065
     Dates: start: 2018, end: 202101
  6. ELOCTATE [Suspect]
     Active Substance: EFMOROCTOCOG ALFA
     Route: 065
     Dates: start: 202102
  7. ELOCTATE [Suspect]
     Active Substance: EFMOROCTOCOG ALFA
     Route: 065
     Dates: start: 202106
  8. ELOCTATE [Suspect]
     Active Substance: EFMOROCTOCOG ALFA
     Route: 065
     Dates: start: 202201
  9. ELOCTATE [Suspect]
     Active Substance: EFMOROCTOCOG ALFA
     Route: 065
     Dates: start: 2022
  10. ELOCTATE [Suspect]
     Active Substance: EFMOROCTOCOG ALFA
     Route: 065
  11. EFANESOCTOCOG ALFA [Suspect]
     Active Substance: EFANESOCTOCOG ALFA
     Indication: Product used for unknown indication
     Dosage: ALTUVOCT
     Route: 065
  12. EFANESOCTOCOG ALFA [Suspect]
     Active Substance: EFANESOCTOCOG ALFA
     Route: 065

REACTIONS (8)
  - Haemarthrosis [Unknown]
  - Haematuria [Unknown]
  - Pyrexia [Unknown]
  - Bacteraemia [Recovered/Resolved]
  - Haemophilic arthropathy [Unknown]
  - Synovitis [Unknown]
  - Joint effusion [Unknown]
  - Haematoma [Unknown]

NARRATIVE: CASE EVENT DATE: 20210101
